FAERS Safety Report 7360046-0 (Version None)
Quarter: 2011Q1

REPORT INFORMATION
  Report Type: 
  Country: None (occurrence: None)
  Receive Date: 20110317
  Receipt Date: 20100216
  Transmission Date: 20110831
  Serious: No
  Sender: FDA-Public Use
  Company Number: US-PFIZER INC-2010020999

PATIENT
  Sex: Female
  Weight: 58.05 kg

DRUGS (4)
  1. AMLODIPINE BESYLATE [Suspect]
     Indication: HYPERTENSION
     Dosage: 2.5 MG, 1X/DAY
     Dates: start: 20091001
  2. EVISTA [Concomitant]
     Indication: OSTEOPOROSIS
     Dosage: UNK
  3. VALSARTAN [Concomitant]
     Dosage: UNK
  4. ARICEPT [Concomitant]
     Indication: DEMENTIA ALZHEIMER'S TYPE
     Dosage: UNK

REACTIONS (4)
  - PRURITUS [None]
  - RASH [None]
  - BLOOD PRESSURE INADEQUATELY CONTROLLED [None]
  - DRY SKIN [None]
